FAERS Safety Report 4879082-9 (Version None)
Quarter: 2006Q1

REPORT INFORMATION
  Report Type: 
  Country: None (occurrence: None)
  Receive Date: 20060111
  Receipt Date: 20060111
  Transmission Date: 20060701
  Serious: Yes (Other)
  Sender: FDA-Public Use
  Company Number: None

PATIENT
  Age: 53 Year
  Sex: Male
  Weight: 66.8 kg

DRUGS (1)
  1. ZOSYN [Suspect]
     Indication: ABDOMINAL INFECTION
     Dosage: 3.375G, 3.375GX1, IV PIGGY
     Route: 042
     Dates: start: 20051126, end: 20051126

REACTIONS (1)
  - RASH [None]
